FAERS Safety Report 6088892-4 (Version None)
Quarter: 2009Q1

REPORT INFORMATION
  Report Type: 
  Country: None (occurrence: None)
  Receive Date: 20090224
  Receipt Date: 20090213
  Transmission Date: 20090719
  Serious: Yes (Hospitalization, Other)
  Sender: FDA-Public Use
  Company Number: US-AMGEN-QUU327878

PATIENT
  Sex: Female
  Weight: 63.6 kg

DRUGS (2)
  1. ENBREL [Suspect]
     Indication: RHEUMATOID ARTHRITIS
     Route: 058
     Dates: start: 20071017
  2. METHOTREXATE [Concomitant]

REACTIONS (3)
  - ATRIAL TACHYCARDIA [None]
  - INGROWING NAIL [None]
  - MITRAL VALVE INCOMPETENCE [None]
